FAERS Safety Report 14282703 (Version 1)
Quarter: 2017Q4

REPORT INFORMATION
  Report Type: Spontaneous
  Country: US (occurrence: US)
  Receive Date: 20171213
  Receipt Date: 20171213
  Transmission Date: 20180321
  Serious: No
  Sender: FDA-Public Use
  Company Number: US-MISSION PHARMACAL COMPANY-2037142

PATIENT
  Age: 40 Year
  Sex: Female

DRUGS (2)
  1. AZO [Concomitant]
     Active Substance: PHENAZOPYRIDINE HYDROCHLORIDE
     Route: 065
  2. THIOLA [Suspect]
     Active Substance: TIOPRONIN
     Indication: NEPHROLITHIASIS
     Route: 065
     Dates: start: 20141010

REACTIONS (4)
  - Swelling [Unknown]
  - Drug ineffective [Unknown]
  - Urinary retention [Unknown]
  - Pain [Recovered/Resolved]
